FAERS Safety Report 5860459-X (Version None)
Quarter: 2008Q3

REPORT INFORMATION
  Report Type: 
  Country: None (occurrence: None)
  Receive Date: 20080827
  Receipt Date: 20070919
  Transmission Date: 20090109
  Serious: No
  Sender: FDA-Public Use
  Company Number: US-ABBOTT-07P-163-0376883-00

PATIENT
  Sex: Male
  Weight: 122.5 kg

DRUGS (8)
  1. COATED PDS [Suspect]
     Indication: HIGH DENSITY LIPOPROTEIN DECREASED
     Route: 048
     Dates: start: 20070701
  2. ACETYLSALICYLIC ACID SRT [Concomitant]
     Indication: PROPHYLAXIS
     Route: 048
  3. ACETYLSALICYLIC ACID SRT [Concomitant]
     Route: 048
  4. ATENOLOL [Concomitant]
     Indication: HEART RATE IRREGULAR
     Route: 048
  5. ATENOLOL [Concomitant]
     Indication: BLOOD PRESSURE
  6. VALSARTAN [Concomitant]
     Indication: BLOOD PRESSURE
     Route: 048
  7. AZETIA [Concomitant]
     Indication: ARTERIOSCLEROSIS
     Route: 048
  8. MULTI-VITAMIN [Concomitant]
     Indication: VITAMIN SUPPLEMENTATION
     Route: 048

REACTIONS (3)
  - FLUSHING [None]
  - FOOD INTERACTION [None]
  - PRURITUS [None]
